FAERS Safety Report 5701968-3 (Version None)
Quarter: 2008Q2

REPORT INFORMATION
  Report Type: 
  Country: None (occurrence: None)
  Receive Date: 20080411
  Receipt Date: 20070406
  Transmission Date: 20081010
  Serious: No
  Sender: FDA-Public Use
  Company Number: US-ABBOTT-07P-163-0364541-00

PATIENT
  Sex: Female
  Weight: 70.37 kg

DRUGS (2)
  1. DEPAKOTE [Suspect]
     Indication: BIPOLAR DISORDER
     Route: 048
     Dates: start: 20061001, end: 20070401
  2. QUETIAPINE FUMARATE [Concomitant]
     Indication: BIPOLAR DISORDER
     Route: 048
     Dates: start: 20060601

REACTIONS (2)
  - MUSCULOSKELETAL STIFFNESS [None]
  - TREMOR [None]
